FAERS Safety Report 7753337-2 (Version None)
Quarter: 2011Q3

REPORT INFORMATION
  Report Type: 
  Country: None (occurrence: None)
  Receive Date: 20110915
  Receipt Date: 20110830
  Transmission Date: 20111222
  Serious: No
  Sender: FDA-Public Use
  Company Number: US-B.I. PHARMACEUTICALS,INC./RIDGEFIELD-2011-BP-17967BP

PATIENT
  Age: 78 Year
  Sex: Female

DRUGS (4)
  1. PRADAXA [Suspect]
     Indication: ATRIAL FIBRILLATION
     Dates: start: 20110321
  2. HYDROCHLOROTHIAZIDE [Concomitant]
     Indication: HEART RATE IRREGULAR
     Dosage: 12.5 MG
  3. METOPROLOL TARTRATE [Concomitant]
     Indication: HEART RATE IRREGULAR
  4. DILTIAZEM [Concomitant]
     Indication: HEART RATE IRREGULAR

REACTIONS (8)
  - OEDEMA PERIPHERAL [None]
  - VISION BLURRED [None]
  - FATIGUE [None]
  - MUSCULAR WEAKNESS [None]
  - RASH PRURITIC [None]
  - ARTHRALGIA [None]
  - HEADACHE [None]
  - NAUSEA [None]
